FAERS Safety Report 7007744-6 (Version None)
Quarter: 2010Q3

REPORT INFORMATION
  Report Type: 
  Country: None (occurrence: None)
  Receive Date: 20100920
  Receipt Date: 20100903
  Transmission Date: 20110219
  Serious: Yes (Hospitalization, Other)
  Sender: FDA-Public Use
  Company Number: JPI-P-012109

PATIENT
  Age: 38 Year
  Sex: Female

DRUGS (14)
  1. XYREM [Suspect]
     Indication: NARCOLEPSY
     Dosage: 9 GM (4.5GM, 2 IN 1 D) ORAL; 3 GM (1.5 GM, 2 IN 1 D) ORAL; 4.5 GM (2.25 GM, 2 INI 1 D) ORAL
     Route: 048
     Dates: start: 20051001, end: 20050101
  2. XYREM [Suspect]
     Indication: NARCOLEPSY
     Dosage: 9 GM (4.5GM, 2 IN 1 D) ORAL; 3 GM (1.5 GM, 2 IN 1 D) ORAL; 4.5 GM (2.25 GM, 2 INI 1 D) ORAL
     Route: 048
     Dates: start: 20050925, end: 20050926
  3. XYREM [Suspect]
     Indication: NARCOLEPSY
     Dosage: 9 GM (4.5GM, 2 IN 1 D) ORAL; 3 GM (1.5 GM, 2 IN 1 D) ORAL; 4.5 GM (2.25 GM, 2 INI 1 D) ORAL
     Route: 048
     Dates: start: 20051001, end: 20051001
  4. XYREM [Suspect]
     Indication: NARCOLEPSY
     Dosage: 9 GM (4.5GM, 2 IN 1 D) ORAL; 3 GM (1.5 GM, 2 IN 1 D) ORAL; 4.5 GM (2.25 GM, 2 INI 1 D) ORAL
     Route: 048
     Dates: start: 20051007, end: 20051001
  5. XYREM [Suspect]
     Indication: NARCOLEPSY
     Dosage: 9 GM (4.5GM, 2 IN 1 D) ORAL; 3 GM (1.5 GM, 2 IN 1 D) ORAL; 4.5 GM (2.25 GM, 2 INI 1 D) ORAL
     Route: 048
     Dates: start: 20050927, end: 20051002
  6. XYREM [Suspect]
     Indication: NARCOLEPSY
     Dosage: 9 GM (4.5GM, 2 IN 1 D) ORAL; 3 GM (1.5 GM, 2 IN 1 D) ORAL; 4.5 GM (2.25 GM, 2 INI 1 D) ORAL
     Route: 048
     Dates: start: 20051003, end: 20051003
  7. XYREM [Suspect]
     Indication: NARCOLEPSY
     Dosage: 9 GM (4.5GM, 2 IN 1 D) ORAL; 3 GM (1.5 GM, 2 IN 1 D) ORAL; 4.5 GM (2.25 GM, 2 INI 1 D) ORAL
     Route: 048
     Dates: start: 20051004, end: 20051006
  8. XYREM [Suspect]
     Indication: NARCOLEPSY
     Dosage: 9 GM (4.5GM, 2 IN 1 D) ORAL; 3 GM (1.5 GM, 2 IN 1 D) ORAL; 4.5 GM (2.25 GM, 2 INI 1 D) ORAL
     Route: 048
     Dates: start: 20050101, end: 20051224
  9. XYREM [Suspect]
     Indication: NARCOLEPSY
     Dosage: 9 GM (4.5GM, 2 IN 1 D) ORAL; 3 GM (1.5 GM, 2 IN 1 D) ORAL; 4.5 GM (2.25 GM, 2 INI 1 D) ORAL
     Route: 048
     Dates: start: 20051225, end: 20051225
  10. XYREM [Suspect]
     Indication: NARCOLEPSY
     Dosage: 9 GM (4.5GM, 2 IN 1 D) ORAL; 3 GM (1.5 GM, 2 IN 1 D) ORAL; 4.5 GM (2.25 GM, 2 INI 1 D) ORAL
     Route: 048
     Dates: end: 20060101
  11. XYREM [Suspect]
     Indication: NARCOLEPSY
     Dosage: 9 GM (4.5GM, 2 IN 1 D) ORAL; 3 GM (1.5 GM, 2 IN 1 D) ORAL; 4.5 GM (2.25 GM, 2 INI 1 D) ORAL
     Route: 048
     Dates: start: 20050725, end: 20100725
  12. XYREM [Suspect]
     Indication: NARCOLEPSY
     Dosage: 9 GM (4.5GM, 2 IN 1 D) ORAL; 3 GM (1.5 GM, 2 IN 1 D) ORAL; 4.5 GM (2.25 GM, 2 INI 1 D) ORAL
     Route: 048
     Dates: end: 20100801
  13. XYREM [Suspect]
     Indication: NARCOLEPSY
     Dosage: 9 GM (4.5GM, 2 IN 1 D) ORAL; 3 GM (1.5 GM, 2 IN 1 D) ORAL; 4.5 GM (2.25 GM, 2 INI 1 D) ORAL
     Route: 048
     Dates: start: 20060101
  14. XYREM [Suspect]
     Indication: NARCOLEPSY
     Dosage: 9 GM (4.5GM, 2 IN 1 D) ORAL; 3 GM (1.5 GM, 2 IN 1 D) ORAL; 4.5 GM (2.25 GM, 2 INI 1 D) ORAL
     Route: 048
     Dates: start: 20100901

REACTIONS (29)
  - BALANCE DISORDER [None]
  - CONFUSIONAL STATE [None]
  - DEPRESSION [None]
  - DIZZINESS [None]
  - DRUG EXPOSURE DURING PREGNANCY [None]
  - DRUG INTERACTION [None]
  - EMOTIONAL DISORDER [None]
  - EUPHORIC MOOD [None]
  - FEAR [None]
  - FEELING ABNORMAL [None]
  - GAIT DISTURBANCE [None]
  - HAEMORRHAGE [None]
  - HEADACHE [None]
  - HYPERHIDROSIS [None]
  - HYPOPHAGIA [None]
  - HYSTERECTOMY [None]
  - INCORRECT DOSE ADMINISTERED [None]
  - INSOMNIA [None]
  - IRRITABILITY [None]
  - MUSCLE SPASMS [None]
  - NAUSEA [None]
  - PAIN [None]
  - PANIC DISORDER [None]
  - PREGNANCY [None]
  - PROCEDURAL COMPLICATION [None]
  - SEDATION [None]
  - SPEECH DISORDER [None]
  - VOMITING [None]
  - WEIGHT DECREASED [None]
